FAERS Safety Report 8121913-3 (Version None)
Quarter: 2011Q4

REPORT INFORMATION
  Report Type: 
  Country: None (occurrence: None)
  Receive Date: 20111227
  Receipt Date: 20111006
  Transmission Date: 20120403
  Serious: No
  Sender: FDA-Public Use
  Company Number: PHEH2011US06224

PATIENT
  Age: 32 Year
  Sex: Female

DRUGS (1)
  1. GILENYA [Suspect]
     Indication: MULTIPLE SCLEROSIS
     Dosage: 0.5 MG, QD, ORAL
     Route: 048

REACTIONS (12)
  - MIGRAINE [None]
  - DEPRESSION [None]
  - MENTAL DISORDER [None]
  - TREMOR [None]
  - DIARRHOEA [None]
  - CRYING [None]
  - INSOMNIA [None]
  - NERVOUSNESS [None]
  - NAUSEA [None]
  - EYE PAIN [None]
  - MOOD SWINGS [None]
  - SOCIAL AVOIDANT BEHAVIOUR [None]
